FAERS Safety Report 5610703-9 (Version None)
Quarter: 2008Q1

REPORT INFORMATION
  Report Type: 
  Country: None (occurrence: None)
  Receive Date: 20080130
  Receipt Date: 20080130
  Transmission Date: 20080703
  Serious: Yes (Hospitalization, Disabling, Other)
  Sender: FDA-Public Use
  Company Number: None

PATIENT
  Age: 64 Year
  Sex: Female
  Weight: 117.9352 kg

DRUGS (1)
  1. VYTORIN [Suspect]
     Indication: BLOOD CHOLESTEROL INCREASED
     Dosage: 1 PER DAY  (DURATION: 1-1/2 TO 2 YEARS)

REACTIONS (3)
  - ASTHENIA [None]
  - EXERCISE TOLERANCE DECREASED [None]
  - HAEMORRHAGE [None]
